FAERS Safety Report 7531997-9 (Version None)
Quarter: 2011Q2

REPORT INFORMATION
  Report Type: 
  Country: None (occurrence: None)
  Receive Date: 20110608
  Receipt Date: 20110602
  Transmission Date: 20111010
  Serious: Yes (Hospitalization)
  Sender: FDA-Public Use
  Company Number: US-ACTELION-A-US2010-38179

PATIENT

DRUGS (5)
  1. TRACLEER [Suspect]
     Indication: PRODUCT USED FOR UNKNOWN INDICATION
     Dosage: 125 MG, BID
     Route: 048
     Dates: start: 20080701
  2. AMPICILLIN SODIUM [Concomitant]
  3. TREPROSTINIL [Concomitant]
  4. NAFCILLIN [Concomitant]
  5. VORICONAZOLE [Concomitant]

REACTIONS (3)
  - STAPHYLOCOCCAL SEPSIS [None]
  - CONDITION AGGRAVATED [None]
  - BLOOD BILIRUBIN INCREASED [None]
